FAERS Safety Report 6667522-4 (Version None)
Quarter: 2010Q1

REPORT INFORMATION
  Report Type: 
  Country: None (occurrence: None)
  Receive Date: 20100331
  Receipt Date: 20100318
  Transmission Date: 20100710
  Serious: Yes (Death)
  Sender: FDA-Public Use
  Company Number: 009032

PATIENT

DRUGS (1)
  1. ALPROSTADIL [Suspect]
     Dosage: ()

REACTIONS (2)
  - HAEMORRHAGE NEONATAL [None]
  - POST PROCEDURAL COMPLICATION [None]
